FAERS Safety Report 9871039 (Version 2)
Quarter: 2014Q1

REPORT INFORMATION
  Report Type: Spontaneous
  Country: US (occurrence: US)
  Receive Date: 20140205
  Receipt Date: 20140303
  Transmission Date: 20141002
  Serious: Yes (Other)
  Sender: FDA-Public Use
  Company Number: CHPA2014US002068

PATIENT
  Age: 71 Year
  Sex: Female

DRUGS (3)
  1. MAALOX ADV MAXIMUM STRENGTH ANTACID/ANTIGAS [Suspect]
     Indication: GASTROOESOPHAGEAL REFLUX DISEASE
     Dosage: 2 TBSP, PRN
     Route: 048
  2. MAALOX ADV MAXIMUM STRENGTH ANTACID/ANTIGAS [Suspect]
     Indication: OFF LABEL USE
  3. OMEPRAZOLE [Concomitant]
     Indication: GASTROOESOPHAGEAL REFLUX DISEASE

REACTIONS (4)
  - Vaginal infection [Recovered/Resolved]
  - Expired drug administered [Unknown]
  - Therapeutic response unexpected [Unknown]
  - Incorrect dose administered [Unknown]
